FAERS Safety Report 23150520 (Version 1)
Quarter: 2023Q4

REPORT INFORMATION
  Report Type: Spontaneous
  Country: US (occurrence: None)
  Receive Date: 20231105
  Receipt Date: 20231105
  Transmission Date: 20240110
  Serious: Yes (Disabling, Other)
  Sender: FDA-Public Use
  Company Number: None

PATIENT
  Age: 21 Year
  Sex: Female
  Weight: 111.15 kg

DRUGS (2)
  1. BUPROPION HYDROCHLORIDE [Suspect]
     Active Substance: BUPROPION HYDROCHLORIDE
     Indication: Depression
     Dosage: OTHER QUANTITY : 1 TABLET(S);?FREQUENCY : EVERY 12 HOURS;?
     Route: 048
     Dates: start: 20231020, end: 20231027
  2. famitodine [Concomitant]

REACTIONS (5)
  - Dyspnoea [None]
  - Dizziness [None]
  - Vision blurred [None]
  - Impaired driving ability [None]
  - Panic attack [None]

NARRATIVE: CASE EVENT DATE: 20231025
